FAERS Safety Report 24608864 (Version 2)
Quarter: 2024Q4

REPORT INFORMATION
  Report Type: Spontaneous
  Country: FR (occurrence: FR)
  Receive Date: 20241112
  Receipt Date: 20241209
  Transmission Date: 20250114
  Serious: Yes (Death, Hospitalization)
  Sender: PFIZER
  Company Number: FR-PFIZER INC-202400295750

PATIENT
  Age: 73 Year
  Sex: Female

DRUGS (1)
  1. ELRANATAMAB [Suspect]
     Active Substance: ELRANATAMAB
     Indication: Plasma cell myeloma refractory
     Dosage: 76 MG, 1X/DAY (DOSE INCREASED D1, D4 AND D8)
     Dates: start: 202410, end: 202411

REACTIONS (6)
  - Neoplasm progression [Fatal]
  - Pleural effusion [Recovering/Resolving]
  - Urinary tract infection [Recovering/Resolving]
  - Dyspnoea [Recovering/Resolving]
  - Fatigue [Recovering/Resolving]
  - Malnutrition [Recovering/Resolving]

NARRATIVE: CASE EVENT DATE: 20241029
